FAERS Safety Report 10698066 (Version 1)
Quarter: 2015Q1

REPORT INFORMATION
  Report Type: Spontaneous
  Country: US (occurrence: None)
  Receive Date: 20150107
  Receipt Date: 20150107
  Transmission Date: 20150721
  Serious: Yes (Hospitalization)
  Sender: FDA-Public Use
  Company Number: None

PATIENT
  Age: 65 Year
  Sex: Male
  Weight: 110 kg

DRUGS (1)
  1. METOCLOPRAMIDE. [Suspect]
     Active Substance: METOCLOPRAMIDE
     Indication: GASTROOESOPHAGEAL REFLUX DISEASE
     Dosage: MG PO
     Route: 048
     Dates: start: 20141017, end: 20141021

REACTIONS (3)
  - Sedation [None]
  - Bradycardia [None]
  - Dystonia [None]

NARRATIVE: CASE EVENT DATE: 20141021
